FAERS Safety Report 24608102 (Version 1)
Quarter: 2024Q4

REPORT INFORMATION
  Report Type: Spontaneous
  Country: US (occurrence: None)
  Receive Date: 20241111
  Receipt Date: 20241111
  Transmission Date: 20250114
  Serious: Yes (Other)
  Sender: Public
  Company Number: None

PATIENT
  Age: 70 Year
  Sex: Male
  Weight: 96.75 kg

DRUGS (25)
  1. METHYLPREDNISOLONE [Suspect]
     Active Substance: METHYLPREDNISOLONE
     Indication: Pain in extremity
     Dosage: OTHER QUANTITY : 21 TABLET(S);?OTHER FREQUENCY : DOSING PER DOSEPAK;?
     Route: 048
     Dates: start: 20241028, end: 20241031
  2. LISINOPRIL [Concomitant]
     Active Substance: LISINOPRIL
  3. ATORVASTATIN [Concomitant]
     Active Substance: ATORVASTATIN
  4. TESTOSTERONE [Concomitant]
     Active Substance: TESTOSTERONE
  5. METFORMIN [Concomitant]
     Active Substance: METFORMIN HYDROCHLORIDE
  6. senior multivitamin with minerals [Concomitant]
  7. ASPIRIN [Concomitant]
     Active Substance: ASPIRIN
  8. VITAMIN D3 [Concomitant]
     Active Substance: CHOLECALCIFEROL
  9. FERROUS BISGLYCINATE [Concomitant]
     Active Substance: FERROUS BISGLYCINATE
  10. MENAQUINONE 6 [Concomitant]
     Active Substance: MENAQUINONE 6
  11. algae omega-3 [Concomitant]
  12. ALPHA LIPOIC ACID [Concomitant]
     Active Substance: .ALPHA.-LIPOIC ACID
  13. VITAMIN C [Concomitant]
     Active Substance: ASCORBIC ACID
  14. MAGNESIUM [Concomitant]
     Active Substance: MAGNESIUM
  15. GARLIC [Concomitant]
     Active Substance: GARLIC
  16. CINNAMON [Concomitant]
     Active Substance: CINNAMON
  17. FLAXSEED [Concomitant]
     Active Substance: FLAX SEED
  18. ASIAN GINSENG [Concomitant]
     Active Substance: ASIAN GINSENG
  19. GINKGO [Concomitant]
     Active Substance: GINKGO
  20. COENZYME Q10 [Concomitant]
     Active Substance: DIETARY SUPPLEMENT\UBIDECARENONE
  21. TEA [Concomitant]
     Active Substance: TEA LEAF
  22. sunflower lecithin [Concomitant]
  23. BORON [Concomitant]
     Active Substance: BORON
  24. ZINC [Concomitant]
     Active Substance: ZINC
  25. COPPER [Concomitant]
     Active Substance: COPPER

REACTIONS (3)
  - Visual impairment [None]
  - Vitreous floaters [None]
  - Vision blurred [None]

NARRATIVE: CASE EVENT DATE: 20241031
